FAERS Safety Report 7465271-6 (Version None)
Quarter: 2011Q2

REPORT INFORMATION
  Report Type: 
  Country: None (occurrence: None)
  Receive Date: 20110509
  Receipt Date: 20110430
  Transmission Date: 20111010
  Serious: Yes (Other)
  Sender: FDA-Public Use
  Company Number: PHHY2011BR37225

PATIENT
  Sex: Female

DRUGS (2)
  1. TRILEPTAL [Suspect]
     Dosage: 3 DF, DAILY
     Route: 048
  2. TRILEPTAL [Suspect]
     Indication: CONVULSION
     Dosage: 2 DF, DAILY
     Route: 048
     Dates: start: 20070101

REACTIONS (7)
  - MALAISE [None]
  - CEREBRAL INFARCTION [None]
  - DRY MOUTH [None]
  - INTESTINAL FUNCTIONAL DISORDER [None]
  - SLEEP DISORDER [None]
  - CONVULSION [None]
  - MYALGIA [None]
